FAERS Safety Report 12950547 (Version 1)
Quarter: 2016Q4

REPORT INFORMATION
  Report Type: Spontaneous
  Country: US (occurrence: US)
  Receive Date: 20161117
  Receipt Date: 20161117
  Transmission Date: 20170207
  Serious: No
  Sender: FDA-Public Use
  Company Number: None

PATIENT
  Age: 56 Year
  Sex: Female

DRUGS (1)
  1. VOTRIENT [Suspect]
     Active Substance: PAZOPANIB HYDROCHLORIDE

REACTIONS (4)
  - Diarrhoea [None]
  - Vomiting [None]
  - Nausea [None]
  - Haematemesis [None]

NARRATIVE: CASE EVENT DATE: 20161117
